FAERS Safety Report 9796390 (Version 2)
Quarter: 2014Q1

REPORT INFORMATION
  Report Type: Spontaneous
  Country: BE (occurrence: BE)
  Receive Date: 20140103
  Receipt Date: 20140217
  Transmission Date: 20141002
  Serious: Yes (Other)
  Sender: FDA-Public Use
  Company Number: BE-AMGEN-BELSP2013091709

PATIENT
  Age: 75 Year
  Sex: Female

DRUGS (3)
  1. PROLIA [Suspect]
     Indication: OSTEOPOROSIS
     Dosage: UNK
     Route: 065
     Dates: start: 20130607
  2. ACLASTA [Concomitant]
     Dosage: UNK
     Route: 042
     Dates: start: 201005
  3. ALENDRONATE SODIUM [Concomitant]
     Dosage: 70 MG, UNK
     Route: 065

REACTIONS (2)
  - Fractured sacrum [Unknown]
  - Fall [Unknown]
